FAERS Safety Report 20638326 (Version 1)
Quarter: 2022Q1

REPORT INFORMATION
  Report Type: Spontaneous
  Country: US (occurrence: None)
  Receive Date: 20220325
  Receipt Date: 20220325
  Transmission Date: 20220423
  Serious: Yes (Other)
  Sender: FDA-Public Use
  Company Number: US-Fresenius Kabi-FK202203371

PATIENT
  Age: 18 Year
  Sex: Male

DRUGS (10)
  1. PROPOFOL [Suspect]
     Active Substance: PROPOFOL
     Indication: Anaesthesia
     Dosage: UNKNOWN
     Route: 042
  2. REMIFENTANIL [Suspect]
     Active Substance: REMIFENTANIL
     Indication: Anaesthesia
     Dosage: UNKNOWN
     Route: 042
  3. CEFAZOLIN [Suspect]
     Active Substance: CEFAZOLIN
     Indication: Anaesthesia
     Dosage: UNKNOWN
     Route: 042
  4. FENTANYL [Concomitant]
     Active Substance: FENTANYL
     Indication: Anaesthesia
     Dosage: UNKNOWN
     Route: 042
  5. DEXAMETHASONE [Concomitant]
     Active Substance: DEXAMETHASONE
     Dosage: UNKNOWN
     Route: 042
  6. TRANEXAMIC ACID [Concomitant]
     Active Substance: TRANEXAMIC ACID
     Dosage: UNKNOWN
  7. METHADONE [Concomitant]
     Active Substance: METHADONE HYDROCHLORIDE
     Dosage: UNKNOWN
     Route: 065
  8. ISOPROPANOL/CHLORHEXIDINE GLUCONATE [Concomitant]
     Indication: Spinal fusion surgery
     Dosage: UNKNOWN
     Route: 061
  9. IODINE [Concomitant]
     Active Substance: IODINE
     Indication: Spinal fusion surgery
     Dosage: UNKNOWN
     Route: 061
  10. STYRAX BENZOIN TINCTURE [Concomitant]
     Indication: Spinal fusion surgery
     Dosage: UNKNOWN
     Route: 061

REACTIONS (1)
  - Anaphylactic reaction [Recovering/Resolving]
